FAERS Safety Report 9503610 (Version 7)
Quarter: 2015Q4

REPORT INFORMATION
  Report Type: Spontaneous
  Country: TR (occurrence: TR)
  Receive Date: 20130906
  Receipt Date: 20151030
  Transmission Date: 20160305
  Serious: Yes (Life-Threatening, Hospitalization, Other)
  Sender: FDA-Public Use
  Company Number: TR-BAYER-2013-103970

PATIENT
  Age: 26 Year
  Sex: Female

DRUGS (2)
  1. YAZZ 24+4 [Suspect]
     Active Substance: DROSPIRENONE\ETHINYL ESTRADIOL
     Indication: CONTRACEPTION
     Dosage: UNK
     Dates: start: 20121210
  2. MINOSET PLUS [Suspect]
     Active Substance: ACETAMINOPHEN\CAFFEINE\PROPYPHENAZONE
     Indication: CHEST PAIN
     Dosage: UNK
     Dates: start: 20130515

REACTIONS (13)
  - Chest pain [Not Recovered/Not Resolved]
  - Cholelithiasis [Not Recovered/Not Resolved]
  - Dyspnoea [Not Recovered/Not Resolved]
  - Chronic obstructive pulmonary disease [None]
  - Drug ineffective [None]
  - Peptic ulcer [None]
  - Dizziness [Not Recovered/Not Resolved]
  - Pain [Not Recovered/Not Resolved]
  - Pulmonary embolism [Not Recovered/Not Resolved]
  - Pneumonia [None]
  - Mobility decreased [Not Recovered/Not Resolved]
  - Asthma [None]
  - Seasonal allergy [None]

NARRATIVE: CASE EVENT DATE: 2013
